FAERS Safety Report 20265105 (Version 4)
Quarter: 2023Q1

REPORT INFORMATION
  Report Type: Spontaneous
  Country: US (occurrence: US)
  Receive Date: 20211231
  Receipt Date: 20230316
  Transmission Date: 20230417
  Serious: No
  Sender: FDA-Public Use
  Company Number: US-PFIZER INC-202101351532

PATIENT
  Age: 71 Year
  Sex: Female

DRUGS (1)
  1. IBRANCE [Suspect]
     Active Substance: PALBOCICLIB
     Dosage: 100 MG

REACTIONS (6)
  - Neoplasm progression [Unknown]
  - Dyspnoea [Unknown]
  - Alopecia [Unknown]
  - Madarosis [Unknown]
  - Malaise [Unknown]
  - Fall [Unknown]
